FAERS Safety Report 23285304 (Version 1)
Quarter: 2023Q4

REPORT INFORMATION
  Report Type: Spontaneous
  Country: RU (occurrence: None)
  Receive Date: 20231211
  Receipt Date: 20231211
  Transmission Date: 20240110
  Serious: Yes (Other)
  Sender: FDA-Public Use
  Company Number: 2023A279396

PATIENT
  Sex: Female

DRUGS (2)
  1. OLAPARIB [Suspect]
     Active Substance: OLAPARIB
     Route: 048
  2. ANASTROZOLE [Suspect]
     Active Substance: ANASTROZOLE
     Route: 048

REACTIONS (5)
  - Platelet count abnormal [Not Recovered/Not Resolved]
  - Feeling abnormal [Unknown]
  - Feeding disorder [Unknown]
  - Asthenia [Unknown]
  - Drug ineffective [Unknown]
